FAERS Safety Report 13045460 (Version 1)
Quarter: 2016Q4

REPORT INFORMATION
  Report Type: Report from Study
  Country: US (occurrence: US)
  Receive Date: 20161220
  Receipt Date: 20161220
  Transmission Date: 20170207
  Serious: No
  Sender: FDA-Public Use
  Company Number: PHEH2016US032482

PATIENT
  Age: 60 Year
  Sex: Female
  Weight: 56.24 kg

DRUGS (1)
  1. GILENYA [Suspect]
     Active Substance: FINGOLIMOD HYDROCHLORIDE
     Indication: MULTIPLE SCLEROSIS
     Dosage: 0.5 MG, QD
     Route: 048

REACTIONS (9)
  - Skin burning sensation [Unknown]
  - Photosensitivity reaction [Unknown]
  - Pain [Unknown]
  - Scar [Unknown]
  - Herpes zoster [Unknown]
  - Paraesthesia [Unknown]
  - Malaise [Unknown]
  - Crying [Unknown]
  - Post herpetic neuralgia [Unknown]

NARRATIVE: CASE EVENT DATE: 20160807
